FAERS Safety Report 9242318 (Version 2)
Quarter: 2013Q2

REPORT INFORMATION
  Report Type: Spontaneous
  Country: JP (occurrence: JP)
  Receive Date: 20130419
  Receipt Date: 20130426
  Transmission Date: 20140414
  Serious: Yes (Hospitalization)
  Sender: FDA-Public Use
  Company Number: JP-ABBOTT-13X-087-1075815-00

PATIENT
  Age: 78 Year
  Sex: Male
  Weight: 50 kg

DRUGS (2)
  1. CLARITH [Suspect]
     Indication: BRONCHITIS
     Dates: start: 201206
  2. DISOPYRAMIDE [Suspect]
     Indication: SUPRAVENTRICULAR TACHYCARDIA

REACTIONS (1)
  - Hypoglycaemic coma [Recovered/Resolved]
